FAERS Safety Report 25122519 (Version 2)
Quarter: 2025Q2

REPORT INFORMATION
  Report Type: Spontaneous
  Country: TR (occurrence: TR)
  Receive Date: 20250326
  Receipt Date: 20250401
  Transmission Date: 20250717
  Serious: Yes (Disabling)
  Sender: BOEHRINGER INGELHEIM
  Company Number: TR-BoehringerIngelheim-2025-BI-017478

PATIENT
  Age: 73 Year
  Sex: Female
  Weight: 55 kg

DRUGS (4)
  1. OFEV [Suspect]
     Active Substance: NINTEDANIB
     Indication: Idiopathic pulmonary fibrosis
     Dates: start: 20190725
  2. RABELIS [Concomitant]
     Indication: Product used for unknown indication
  3. LOPERMID [Concomitant]
     Indication: Product used for unknown indication
  4. IVIG (Human normal immunoglobulin) [Concomitant]
     Indication: Product used for unknown indication

REACTIONS (1)
  - Polyneuropathy [Not Recovered/Not Resolved]

NARRATIVE: CASE EVENT DATE: 20250317
